FAERS Safety Report 5922758-2 (Version None)
Quarter: 2008Q4

REPORT INFORMATION
  Report Type: 
  Country: None (occurrence: None)
  Receive Date: 20081014
  Receipt Date: 20081002
  Transmission Date: 20090506
  Serious: Yes (Hospitalization)
  Sender: FDA-Public Use
  Company Number: 2006BI017969

PATIENT
  Age: 50 Year
  Sex: Female
  Weight: 62.1428 kg

DRUGS (4)
  1. AVONEX [Suspect]
     Indication: MULTIPLE SCLEROSIS
     Dosage: 30 UG;QW;IM
     Route: 030
     Dates: start: 19960101, end: 20030801
  2. AVONEX [Suspect]
     Indication: MULTIPLE SCLEROSIS
     Dosage: 30 UG;QW;IM
     Route: 030
     Dates: start: 20030801, end: 20061110
  3. CON MEDS [Concomitant]
  4. PREV MEDS [Concomitant]

REACTIONS (5)
  - CONDITION AGGRAVATED [None]
  - INSOMNIA [None]
  - MULTIPLE SCLEROSIS [None]
  - TACHYCARDIA [None]
  - VERTIGO [None]
